FAERS Safety Report 5599234-2 (Version None)
Quarter: 2008Q1

REPORT INFORMATION
  Report Type: 
  Country: None (occurrence: None)
  Receive Date: 20080117
  Receipt Date: 20080111
  Transmission Date: 20080703
  Serious: Yes (Hospitalization, Other)
  Sender: FDA-Public Use
  Company Number: 2008BI000912

PATIENT
  Age: 82 Year
  Sex: Female
  Weight: 90.7194 kg

DRUGS (5)
  1. AVONEX [Suspect]
     Indication: MULTIPLE SCLEROSIS
     Dosage: 30 UG;QW;IM
     Route: 030
     Dates: start: 19990101
  2. THYROID MEDICATION (NOS) [Concomitant]
  3. ALTENOLOL [Concomitant]
  4. PRILOSEC [Concomitant]
  5. ESTRUM [Concomitant]

REACTIONS (7)
  - CHEST PAIN [None]
  - CONDITION AGGRAVATED [None]
  - CONFUSIONAL STATE [None]
  - HEADACHE [None]
  - HYPERTENSION [None]
  - INSOMNIA [None]
  - LUNG INFECTION [None]
